FAERS Safety Report 17436373 (Version 1)
Quarter: 2020Q1

REPORT INFORMATION
  Report Type: Spontaneous
  Country: US (occurrence: US)
  Receive Date: 20200219
  Receipt Date: 20200219
  Transmission Date: 20200409
  Serious: No
  Sender: FDA-Public Use
  Company Number: US-LANTHEUS-LMI-2019-00722

PATIENT
  Age: 43 Year
  Sex: Female

DRUGS (1)
  1. DEFINITY [Suspect]
     Active Substance: PERFLUTREN
     Indication: ECHOCARDIOGRAM
     Dosage: 5.2 MILLILITER (UNSPECIFIED AMOUNT OF DEFINITY PREPARED IN UNSPECIFIED AMOUNT OF NORMAL SALINE)
     Route: 040
     Dates: start: 20191105, end: 20191105

REACTIONS (4)
  - Pain in extremity [Unknown]
  - Blood pressure increased [Unknown]
  - Back pain [Unknown]
  - Arthralgia [Unknown]

NARRATIVE: CASE EVENT DATE: 20191105
